FAERS Safety Report 23644022 (Version 1)
Quarter: 2024Q1

REPORT INFORMATION
  Report Type: Spontaneous
  Country: CN (occurrence: None)
  Receive Date: 20240318
  Receipt Date: 20240318
  Transmission Date: 20240409
  Serious: Yes (Hospitalization)
  Sender: FDA-Public Use
  Company Number: 2024A052653

PATIENT
  Age: 24848 Day
  Sex: Male
  Weight: 60 kg

DRUGS (3)
  1. DURVALUMAB [Suspect]
     Active Substance: DURVALUMAB
     Indication: Immunochemotherapy
     Route: 041
     Dates: start: 20240108
  2. ETOPOSIDE [Suspect]
     Active Substance: ETOPOSIDE
     Indication: Bronchial carcinoma
     Dosage: 0.1G:5ML
     Route: 041
     Dates: start: 20240108
  3. LOBAPLATIN [Concomitant]
     Active Substance: LOBAPLATIN

REACTIONS (2)
  - Rash erythematous [Recovering/Resolving]
  - Swelling face [Unknown]

NARRATIVE: CASE EVENT DATE: 20240216
